FAERS Safety Report 10252478 (Version 1)
Quarter: 2014Q2

REPORT INFORMATION
  Report Type: Spontaneous
  Country: US (occurrence: US)
  Receive Date: 20140623
  Receipt Date: 20140623
  Transmission Date: 20141212
  Serious: Yes (Hospitalization, Other)
  Sender: FDA-Public Use
  Company Number: US-PFIZER INC-2014171210

PATIENT
  Age: 91 Year
  Sex: Male
  Weight: 74.83 kg

DRUGS (4)
  1. LYRICA [Suspect]
     Indication: NEUROPATHY PERIPHERAL
     Dosage: 50 MG, 3X/DAY
     Route: 048
     Dates: start: 2011
  2. SYNTHROID [Concomitant]
     Indication: THYROID DISORDER
     Dosage: UNK
  3. FLOMAX [Concomitant]
     Dosage: UNK
  4. LASIX [Concomitant]
     Dosage: UNK

REACTIONS (1)
  - Pneumonia [Recovering/Resolving]
